FAERS Safety Report 16934684 (Version 3)
Quarter: 2019Q4

REPORT INFORMATION
  Report Type: Report from Study
  Country: US (occurrence: US)
  Receive Date: 20191018
  Receipt Date: 20191220
  Transmission Date: 20200122
  Serious: Yes (Other)
  Sender: FDA-Public Use
  Company Number: PHHY2019US118372

PATIENT
  Age: 21 Year
  Sex: Male
  Weight: 78 kg

DRUGS (10)
  1. LAMPRENE [Suspect]
     Active Substance: CLOFAZIMINE
     Indication: TUBERCULOSIS
     Dosage: 100 MG, QD
     Route: 048
     Dates: start: 20190411, end: 20191003
  2. CYCLOSERINE. [Suspect]
     Active Substance: CYCLOSERINE
     Indication: TUBERCULOSIS
     Dosage: 500 MG, QD
     Route: 065
     Dates: start: 20190208, end: 20191003
  3. LINEZOLID. [Suspect]
     Active Substance: LINEZOLID
     Indication: TUBERCULOSIS
     Dosage: 600 MG, QD
     Route: 065
     Dates: start: 20190208, end: 20191003
  4. BEDAQUILINE [Suspect]
     Active Substance: BEDAQUILINE
     Indication: TUBERCULOSIS
     Dosage: 200 MG, MWF (MONDAY, WEDNESDAY, FRIDAY)
     Route: 065
     Dates: start: 20190228, end: 20191002
  5. LEVOFLOXACIN. [Suspect]
     Active Substance: LEVOFLOXACIN
     Indication: TUBERCULOSIS
     Dosage: 750 MG, QD
     Route: 065
     Dates: start: 20190208, end: 20191003
  6. AMIKACIN. [Suspect]
     Active Substance: AMIKACIN
     Indication: TUBERCULOSIS
     Dosage: 1 G, QD
     Route: 042
     Dates: start: 20190215, end: 20191003
  7. CYCLOSERINE. [Suspect]
     Active Substance: CYCLOSERINE
     Dosage: UNK
     Route: 065
  8. LINEZOLID. [Suspect]
     Active Substance: LINEZOLID
     Dosage: UNK
     Route: 065
  9. LAMPRENE [Suspect]
     Active Substance: CLOFAZIMINE
     Dosage: UNK
     Route: 048
     Dates: start: 20191031
  10. LEVOFLOXACIN. [Suspect]
     Active Substance: LEVOFLOXACIN
     Dosage: UNK
     Route: 065

REACTIONS (2)
  - Alanine aminotransferase increased [Recovering/Resolving]
  - Aspartate aminotransferase increased [Recovering/Resolving]

NARRATIVE: CASE EVENT DATE: 20190506
